FAERS Safety Report 14831873 (Version 1)
Quarter: 2018Q2

REPORT INFORMATION
  Report Type: Spontaneous
  Country: US (occurrence: US)
  Receive Date: 20180501
  Receipt Date: 20180501
  Transmission Date: 20180711
  Serious: No
  Sender: FDA-Public Use
  Company Number: US-UNITED THERAPEUTICS-UNT-2018-005916

PATIENT
  Sex: Female

DRUGS (1)
  1. REMODULIN [Suspect]
     Active Substance: TREPROSTINIL
     Indication: PRODUCT USED FOR UNKNOWN INDICATION
     Dosage: 0.0423 ?G/KG, CONTINUING
     Route: 058
     Dates: start: 20180113

REACTIONS (2)
  - Pain in jaw [Not Recovered/Not Resolved]
  - Groin pain [Not Recovered/Not Resolved]
